FAERS Safety Report 6101917-2 (Version None)
Quarter: 2009Q1

REPORT INFORMATION
  Report Type: 
  Country: None (occurrence: None)
  Receive Date: 20090304
  Receipt Date: 20090127
  Transmission Date: 20090719
  Serious: Yes (Other)
  Sender: FDA-Public Use
  Company Number: JP-PFIZER INC-2009175694

PATIENT

DRUGS (13)
  1. LIPITOR [Suspect]
     Dosage: 5 MG, 1X/DAY
     Route: 048
     Dates: start: 20060825
  2. ALDACTONE [Suspect]
     Dosage: 25 MG, 1X/DAY
     Route: 048
     Dates: start: 20060825
  3. ARICEPT [Suspect]
     Dosage: 0.5 DF, 1X/DAY
     Route: 048
     Dates: start: 20060825
  4. ACETYLSALICYLIC ACID [Suspect]
     Dosage: UNK
     Route: 048
     Dates: start: 20071126
  5. ONE-ALPHA [Suspect]
     Dosage: 1 UG, 1X/DAY
     Route: 048
     Dates: start: 20071002
  6. ASPARA [Suspect]
     Dosage: UNK
     Route: 048
     Dates: start: 20060911
  7. DEPAS [Suspect]
     Dosage: 0.5 MG, 1X/DAY
     Route: 048
     Dates: start: 20080909
  8. CARNACULIN [Suspect]
     Dosage: UNK
     Route: 048
     Dates: start: 20060825
  9. KETAS [Suspect]
     Dosage: UNK
     Route: 048
     Dates: start: 20060825
  10. ALENDRONATE SODIUM [Suspect]
     Dosage: 35 MG, 1X/DAY
     Route: 048
  11. SHAKUYAKU-KANZO-TO [Suspect]
     Route: 048
  12. PURSENNID [Suspect]
     Route: 048
  13. MYSLEE [Concomitant]
     Dosage: 10 MG, 1X/DAY
     Route: 048
     Dates: start: 20060911

REACTIONS (1)
  - HALLUCINATION [None]
